FAERS Safety Report 22245457 (Version 2)
Quarter: 2023Q2

REPORT INFORMATION
  Report Type: Spontaneous
  Country: CL (occurrence: CL)
  Receive Date: 20230424
  Receipt Date: 20230529
  Transmission Date: 20230722
  Serious: Yes (Other)
  Sender: FDA-Public Use
  Company Number: CL-GLAXOSMITHKLINE-CL2023AMR056627

PATIENT

DRUGS (1)
  1. FLUTICASONE PROPIONATE [Suspect]
     Active Substance: FLUTICASONE PROPIONATE
     Indication: Asthma
     Dosage: 2 PUFF(S), BID
     Route: 055
     Dates: end: 202304

REACTIONS (3)
  - Asthmatic crisis [Recovered/Resolved]
  - Oxygen saturation decreased [Recovered/Resolved]
  - Drug ineffective [Unknown]

NARRATIVE: CASE EVENT DATE: 20230406
